FAERS Safety Report 21977053 (Version 1)
Quarter: 2023Q1

REPORT INFORMATION
  Report Type: Spontaneous
  Country: CO (occurrence: CO)
  Receive Date: 20230210
  Receipt Date: 20230210
  Transmission Date: 20230418
  Serious: Yes (Other)
  Sender: FDA-Public Use
  Company Number: CO-AMGEN-COLSP2023022310

PATIENT
  Sex: Male

DRUGS (1)
  1. XGEVA [Suspect]
     Active Substance: DENOSUMAB
     Indication: Prostate cancer
     Dosage: UNK
     Route: 065

REACTIONS (7)
  - Tubulointerstitial nephritis [Unknown]
  - Dialysis [Unknown]
  - Feeling abnormal [Unknown]
  - Back pain [Unknown]
  - Muscle spasms [Unknown]
  - Creatinine renal clearance increased [Unknown]
  - Off label use [Unknown]
